FAERS Safety Report 5376629-3 (Version None)
Quarter: 2007Q2

REPORT INFORMATION
  Report Type: 
  Country: None (occurrence: None)
  Receive Date: 20070629
  Receipt Date: 20070613
  Transmission Date: 20071010
  Serious: Yes (Hospitalization)
  Sender: FDA-Public Use
  Company Number: 8024943

PATIENT
  Age: 16 Year
  Sex: Male
  Weight: 62 kg

DRUGS (11)
  1. LEVOCETIRIZINE [Suspect]
     Dosage: 5 MG 1/D PO
     Route: 048
     Dates: start: 20070522, end: 20070523
  2. ALFACALCIDOL [Concomitant]
  3. AZATHIOPRINE [Concomitant]
  4. BECLOMETHASONE DIPROPIONATE [Concomitant]
  5. DANAZOL [Concomitant]
  6. FOLIC ACID [Concomitant]
  7. FORCEVAL [Concomitant]
  8. PREDNISOLONE [Concomitant]
  9. RANITIDINE [Concomitant]
  10. SEVELAMER [Concomitant]
  11. WARFARIN SODIUM [Concomitant]

REACTIONS (2)
  - ABDOMINAL PAIN [None]
  - CHEST PAIN [None]
